FAERS Safety Report 23835739 (Version 1)
Quarter: 2024Q2

REPORT INFORMATION
  Report Type: Spontaneous
  Country: US (occurrence: US)
  Receive Date: 20240509
  Receipt Date: 20240509
  Transmission Date: 20240716
  Serious: Yes (Other)
  Sender: FDA-Public Use
  Company Number: US-BAYER-2024A068048

PATIENT
  Age: 19 Year
  Sex: Female

DRUGS (2)
  1. ASPIRIN [Suspect]
     Active Substance: ASPIRIN
     Indication: Thrombolysis
  2. ENOXAPARIN [Suspect]
     Active Substance: ENOXAPARIN
     Dosage: 40 MG, QD

REACTIONS (5)
  - Prolonged rupture of membranes [None]
  - Maternal exposure during pregnancy [None]
  - Off label use [None]
  - Contraindicated product administered [None]
  - Premature delivery [None]
